FAERS Safety Report 7019554-4 (Version None)
Quarter: 2010Q3

REPORT INFORMATION
  Report Type: 
  Country: None (occurrence: None)
  Receive Date: 20100928
  Receipt Date: 20100928
  Transmission Date: 20110219
  Serious: Yes (Life-Threatening, Hospitalization, Other)
  Sender: FDA-Public Use
  Company Number: None

PATIENT
  Age: 59 Year
  Sex: Male
  Weight: 58.9676 kg

DRUGS (2)
  1. OXYCONTIN OP 80MG ,40MG    PURDUE PHARMA [Suspect]
     Indication: AORTIC DISSECTION
     Dosage: 4 TIMES DAILY EVERY DAY PO
     Route: 048
     Dates: start: 20100903, end: 20100927
  2. OXYCONTIN OP 80MG ,40MG    PURDUE PHARMA [Suspect]
     Indication: CORONARY ARTERY BYPASS
     Dosage: 4 TIMES DAILY EVERY DAY PO
     Route: 048
     Dates: start: 20100903, end: 20100927

REACTIONS (8)
  - ABDOMINAL DISTENSION [None]
  - HEADACHE [None]
  - MUSCLE SPASMS [None]
  - PAIN [None]
  - PRODUCT FORMULATION ISSUE [None]
  - QUALITY OF LIFE DECREASED [None]
  - VOMITING [None]
  - WITHDRAWAL SYNDROME [None]
